FAERS Safety Report 9005365 (Version 2)
Quarter: 2013Q4

REPORT INFORMATION
  Report Type: Spontaneous
  Country: MX (occurrence: MX)
  Receive Date: 20130108
  Receipt Date: 20131112
  Transmission Date: 20140711
  Serious: Yes (Other)
  Sender: FDA-Public Use
  Company Number: PHHY2013MX001690

PATIENT
  Age: 68 Year
  Sex: Female

DRUGS (1)
  1. ACLASTA [Suspect]
     Indication: OSTEOPOROSIS
     Dosage: 5 MG/100ML, ANNUAL
     Route: 042
     Dates: start: 200812

REACTIONS (3)
  - Foot fracture [Recovered/Resolved]
  - Skeletal injury [Not Recovered/Not Resolved]
  - Chondropathy [Not Recovered/Not Resolved]
